FAERS Safety Report 9493718 (Version 1)
Quarter: 2013Q3

REPORT INFORMATION
  Report Type: Spontaneous
  Country: MA (occurrence: MA)
  Receive Date: 20130902
  Receipt Date: 20130902
  Transmission Date: 20140515
  Serious: Yes (Other)
  Sender: FDA-Public Use
  Company Number: MA-PFIZER INC-2013248505

PATIENT
  Age: 46 Year
  Sex: Female

DRUGS (1)
  1. FLUOROURACIL [Suspect]
     Indication: BREAST CANCER
     Dosage: 2 CYCLES

REACTIONS (1)
  - Ischaemic stroke [Recovering/Resolving]
